FAERS Safety Report 23446468 (Version 2)
Quarter: 2024Q1

REPORT INFORMATION
  Report Type: Spontaneous
  Country: NL (occurrence: NL)
  Receive Date: 20240126
  Receipt Date: 20240214
  Transmission Date: 20240410
  Serious: Yes (Hospitalization, Other)
  Sender: FDA-Public Use
  Company Number: None

PATIENT

DRUGS (1)
  1. CEFUROXIME [Suspect]
     Active Substance: CEFUROXIME
     Indication: Post procedural infection
     Dosage: 1 DOSAGE FORM, Q8H
     Route: 065
     Dates: start: 20231212, end: 20231218

REACTIONS (1)
  - Clostridium difficile infection [Recovered/Resolved]
